FAERS Safety Report 23320976 (Version 1)
Quarter: 2023Q4

REPORT INFORMATION
  Report Type: Spontaneous
  Country: US (occurrence: None)
  Receive Date: 20231219
  Receipt Date: 20231219
  Transmission Date: 20240109
  Serious: No
  Sender: FDA-Public Use
  Company Number: None

PATIENT
  Age: 77 Year
  Sex: Male

DRUGS (2)
  1. TALTZ [Suspect]
     Active Substance: IXEKIZUMAB
     Indication: Psoriatic arthropathy
     Dosage: OTHER FREQUENCY : AT WEEK 12;?
     Route: 058
     Dates: start: 202206
  2. TALTZ [Suspect]
     Active Substance: IXEKIZUMAB
     Indication: Pustular psoriasis

REACTIONS (1)
  - Pharyngitis streptococcal [None]
